FAERS Safety Report 7916728-2 (Version None)
Quarter: 2011Q4

REPORT INFORMATION
  Report Type: 
  Country: None (occurrence: None)
  Receive Date: 20111114
  Receipt Date: 20111107
  Transmission Date: 20120403
  Serious: Yes (Death, Life-Threatening, Disabling, Other)
  Sender: FDA-Public Use
  Company Number: DSA_47917_2011

PATIENT
  Sex: Male

DRUGS (3)
  1. FLUPHENAZINE [Concomitant]
  2. XENAZINE [Suspect]
     Indication: HUNTINGTON'S DISEASE
     Dosage: (25 MG BID ORAL)
     Route: 048
     Dates: start: 20090716
  3. FLUOXETINE [Concomitant]

REACTIONS (3)
  - PYREXIA [None]
  - RESPIRATORY RATE INCREASED [None]
  - WEIGHT DECREASED [None]
